FAERS Safety Report 5844096-9 (Version None)
Quarter: 2008Q3

REPORT INFORMATION
  Report Type: 
  Country: None (occurrence: None)
  Receive Date: 20080813
  Receipt Date: 20080801
  Transmission Date: 20090109
  Serious: Yes (Hospitalization)
  Sender: FDA-Public Use
  Company Number: FR-PFIZER INC-2008064558

PATIENT
  Sex: Male
  Weight: 73 kg

DRUGS (6)
  1. ANSATIPINE [Suspect]
     Indication: PULMONARY TUBERCULOSIS
     Route: 048
     Dates: start: 20070810, end: 20070810
  2. ANSATIPINE [Suspect]
     Route: 048
  3. KALETRA [Suspect]
     Indication: HIV INFECTION
     Route: 048
  4. IZILOX [Suspect]
     Indication: PULMONARY TUBERCULOSIS
     Route: 048
     Dates: start: 20070701, end: 20080701
  5. VIREAD [Suspect]
     Indication: HIV INFECTION
     Route: 048
  6. COMBIVIR [Concomitant]

REACTIONS (2)
  - ARTHRALGIA [None]
  - SYNOVITIS [None]
